FAERS Safety Report 14951948 (Version 1)
Quarter: 2018Q2

REPORT INFORMATION
  Report Type: Spontaneous
  Country: US (occurrence: US)
  Receive Date: 20180530
  Receipt Date: 20180530
  Transmission Date: 20180711
  Serious: No
  Sender: FDA-Public Use
  Company Number: US-GLAXOSMITHKLINE-US2018091639

PATIENT
  Sex: Female

DRUGS (4)
  1. IMITREX [Suspect]
     Active Substance: SUMATRIPTAN SUCCINATE
     Indication: MIGRAINE
     Dosage: 1 PUFF(S), PRN
     Route: 045
     Dates: start: 201804
  2. METOPROLOL. [Concomitant]
     Active Substance: METOPROLOL
  3. CITALOPRAM [Concomitant]
     Active Substance: CITALOPRAM HYDROBROMIDE
  4. FISH OIL [Concomitant]
     Active Substance: FISH OIL

REACTIONS (1)
  - Nasal ulcer [Not Recovered/Not Resolved]
